FAERS Safety Report 11876431 (Version 1)
Quarter: 2015Q4

REPORT INFORMATION
  Report Type: Spontaneous
  Country: US (occurrence: US)
  Receive Date: 20151229
  Receipt Date: 20151229
  Transmission Date: 20160305
  Serious: No
  Sender: FDA-Public Use
  Company Number: US-PFIZER INC-2015422672

PATIENT
  Age: 54 Year
  Sex: Female

DRUGS (3)
  1. SUTENT [Suspect]
     Active Substance: SUNITINIB MALATE
     Indication: HEPATIC CANCER
     Dosage: 50 MG, CYCLIC (28 DAYS ON/14 DAYS OFF)
  2. SUTENT [Suspect]
     Active Substance: SUNITINIB MALATE
     Indication: RENAL CELL CARCINOMA
  3. SUTENT [Suspect]
     Active Substance: SUNITINIB MALATE
     Indication: LUNG NEOPLASM MALIGNANT
     Dosage: 50 MG, CYCLIC (DAILY 4 WEEKS THEN 2 WEEKS OFF)
     Route: 048

REACTIONS (3)
  - Hypercalcaemia [Unknown]
  - Dehydration [Unknown]
  - Product use issue [Unknown]
